FAERS Safety Report 6255947-0 (Version None)
Quarter: 2009Q3

REPORT INFORMATION
  Report Type: 
  Country: None (occurrence: None)
  Receive Date: 20090706
  Receipt Date: 20090624
  Transmission Date: 20100115
  Serious: Yes (Other)
  Sender: FDA-Public Use
  Company Number: AU-BRISTOL-MYERS SQUIBB COMPANY-14681787

PATIENT
  Age: 83 Year
  Sex: Female

DRUGS (11)
  1. IRBESARTAN [Suspect]
  2. PARACETAMOL [Suspect]
     Indication: PAIN
     Dosage: 4 HR PRN.
  3. FRUSEMIDE [Suspect]
  4. DILTIAZEM [Suspect]
  5. PANTOPRAZOLE SODIUM [Suspect]
  6. SERTRALINE [Suspect]
  7. VALPROATE SODIUM [Suspect]
  8. MELOXICAM [Suspect]
  9. SIGMACORT [Suspect]
  10. SERETIDE [Suspect]
     Dosage: 2 DF = 2 PUFFS OF 250/50.
  11. HYPROMELLOSE EYE DROPS [Suspect]

REACTIONS (7)
  - ABNORMAL BEHAVIOUR [None]
  - BRONCHOSPASM [None]
  - CARDIAC FAILURE [None]
  - GASTROINTESTINAL HAEMORRHAGE [None]
  - GASTROOESOPHAGEAL REFLUX DISEASE [None]
  - RENAL FAILURE [None]
  - TUBULOINTERSTITIAL NEPHRITIS [None]
